FAERS Safety Report 19189847 (Version 1)
Quarter: 2021Q2

REPORT INFORMATION
  Report Type: Spontaneous
  Country: US (occurrence: US)
  Receive Date: 20210428
  Receipt Date: 20210428
  Transmission Date: 20210717
  Serious: Yes (Hospitalization)
  Sender: FDA-Public Use
  Company Number: None

PATIENT
  Age: 75 Year
  Sex: Male
  Weight: 48.1 kg

DRUGS (1)
  1. ERBITUX [Suspect]
     Active Substance: CETUXIMAB
     Dates: end: 20210416

REACTIONS (16)
  - Failure to thrive [None]
  - Orthostatic hypotension [None]
  - Hypotension [None]
  - Dizziness [None]
  - Asthenia [None]
  - Pneumonitis [None]
  - Tachycardia [None]
  - Acute kidney injury [None]
  - Therapy interrupted [None]
  - Sepsis [None]
  - Constipation [None]
  - Chest pain [None]
  - Bronchitis [None]
  - Liver function test increased [None]
  - Dehydration [None]
  - Emphysema [None]

NARRATIVE: CASE EVENT DATE: 20210412
